FAERS Safety Report 9067246 (Version 2)
Quarter: 2013Q1

REPORT INFORMATION
  Report Type: Spontaneous
  Country: US (occurrence: US)
  Receive Date: 20130214
  Receipt Date: 20130328
  Transmission Date: 20140127
  Serious: No
  Sender: FDA-Public Use
  Company Number: US-TEVA-386348USA

PATIENT
  Age: 38 None
  Sex: Male

DRUGS (5)
  1. PROAIR HFA [Suspect]
     Indication: BRONCHOSPASM
  2. AMLODIPINE [Concomitant]
     Indication: HYPERTENSION
     Route: 048
  3. PERCOCET [Concomitant]
     Indication: PAIN
     Route: 048
  4. CYCLOBENZAPRINE [Concomitant]
     Indication: MUSCLE RELAXANT THERAPY
     Route: 048
  5. PREVACID [Concomitant]
     Indication: GASTROOESOPHAGEAL REFLUX DISEASE
     Route: 048

REACTIONS (1)
  - Urine alcohol test positive [Not Recovered/Not Resolved]
